FAERS Safety Report 7125394-8 (Version None)
Quarter: 2010Q4

REPORT INFORMATION
  Report Type: 
  Country: None (occurrence: None)
  Receive Date: 20101129
  Receipt Date: 20101116
  Transmission Date: 20110411
  Serious: Yes (Other)
  Sender: FDA-Public Use
  Company Number: US-ROCHE-722542

PATIENT
  Sex: Female
  Weight: 53.5 kg

DRUGS (2)
  1. ACCUTANE [Suspect]
     Route: 065
     Dates: start: 20000914, end: 20010226
  2. ACCUTANE [Suspect]
     Route: 065
     Dates: start: 20010227, end: 20010424

REACTIONS (3)
  - COLITIS ULCERATIVE [None]
  - INFLAMMATORY BOWEL DISEASE [None]
  - SYSTEMIC LUPUS ERYTHEMATOSUS [None]
